FAERS Safety Report 12356820 (Version 1)
Quarter: 2016Q2

REPORT INFORMATION
  Report Type: Spontaneous
  Country: US (occurrence: US)
  Receive Date: 20160511
  Receipt Date: 20160511
  Transmission Date: 20160815
  Serious: No
  Sender: FDA-Public Use
  Company Number: US-PFIZER INC-2016220737

PATIENT
  Sex: Female

DRUGS (1)
  1. AROMASIN [Suspect]
     Active Substance: EXEMESTANE
     Indication: NEOPLASM MALIGNANT
     Dosage: UNK
     Dates: start: 20160326

REACTIONS (3)
  - Rash [Unknown]
  - Hypersensitivity [Unknown]
  - Rash pruritic [Unknown]
